FAERS Safety Report 11538840 (Version 1)
Quarter: 2015Q3

REPORT INFORMATION
  Report Type: Spontaneous
  Country: US (occurrence: US)
  Receive Date: 20150923
  Receipt Date: 20150923
  Transmission Date: 20151125
  Serious: Yes (Death, Hospitalization, Other)
  Sender: FDA-Public Use
  Company Number: US-BEH-2013035538

PATIENT
  Age: 57 Year
  Sex: Female

DRUGS (1)
  1. IVIG [Suspect]
     Active Substance: HUMAN IMMUNOGLOBULIN G
     Indication: TRANSPLANT REJECTION
     Dosage: 2 GM/KG
     Route: 042

REACTIONS (10)
  - Polyomavirus-associated nephropathy [Unknown]
  - Acute respiratory failure [Unknown]
  - Pneumocystis jirovecii pneumonia [Unknown]
  - Drug ineffective for unapproved indication [Unknown]
  - Disease progression [Unknown]
  - Oliguria [Unknown]
  - Acute kidney injury [Unknown]
  - Multi-organ failure [Fatal]
  - Septic shock [Unknown]
  - BK virus infection [Unknown]
